FAERS Safety Report 6989301-0 (Version None)
Quarter: 2010Q3

REPORT INFORMATION
  Report Type: 
  Country: None (occurrence: None)
  Receive Date: 20100916
  Receipt Date: 20100204
  Transmission Date: 20110219
  Serious: Yes (Other)
  Sender: FDA-Public Use
  Company Number: FR-PFIZER INC-2006138199

PATIENT
  Sex: Female
  Weight: 99 kg

DRUGS (11)
  1. LYRICA [Suspect]
  2. COAPROVEL [Interacting]
     Indication: HYPERTENSION
     Route: 048
  3. BETAXOLOL [Concomitant]
     Route: 048
  4. FENOFIBRATE [Concomitant]
     Route: 048
  5. TRIMETAZIDINE [Concomitant]
     Route: 048
  6. REPAGLINIDE [Concomitant]
     Route: 048
  7. PIOGLITAZONE [Concomitant]
     Route: 048
  8. FUROSEMIDE [Concomitant]
     Route: 048
  9. ISRADIPINE [Concomitant]
     Route: 048
  10. VENLAFAXINE [Concomitant]
     Route: 048
  11. AMITRIPTYLINE HCL [Concomitant]
     Route: 048

REACTIONS (3)
  - BLOOD CREATININE INCREASED [None]
  - BLOOD UREA INCREASED [None]
  - DRUG INTERACTION [None]
